FAERS Safety Report 7486122-X (Version None)
Quarter: 2011Q2

REPORT INFORMATION
  Report Type: 
  Country: None (occurrence: None)
  Receive Date: 20110517
  Receipt Date: 20110510
  Transmission Date: 20111010
  Serious: Yes (Other)
  Sender: FDA-Public Use
  Company Number: US-AMGEN-USASP2011024288

PATIENT
  Sex: Female

DRUGS (5)
  1. NEULASTA [Suspect]
     Indication: CHEMOTHERAPY
     Dosage: UNK
     Dates: start: 20050501, end: 20051101
  2. TAXOTERE [Concomitant]
  3. ARANESP [Suspect]
     Indication: ANAEMIA
     Dates: start: 20050501, end: 20051101
  4. ADRIAMYCIN PFS [Concomitant]
  5. CYTOXAN [Concomitant]

REACTIONS (10)
  - CEREBELLAR ATAXIA [None]
  - BONE PAIN [None]
  - TREMOR [None]
  - NEUROPATHY PERIPHERAL [None]
  - MASTECTOMY [None]
  - DYSTONIA [None]
  - MUSCLE SPASMS [None]
  - ATAXIA [None]
  - BLOOD PRESSURE DECREASED [None]
  - ASTHENIA [None]
